FAERS Safety Report 9090836 (Version 2)
Quarter: 2013Q4

REPORT INFORMATION
  Report Type: Spontaneous
  Country: US (occurrence: US)
  Receive Date: 20130201
  Receipt Date: 20131003
  Transmission Date: 20140711
  Serious: Yes (Death, Hospitalization, Other)
  Sender: FDA-Public Use
  Company Number: US-009507513-1301USA014055

PATIENT
  Sex: Female

DRUGS (2)
  1. FOSAMAX [Suspect]
     Indication: OSTEOPOROSIS
     Dosage: 70 MG, QW
     Route: 048
  2. ALENDRONATE SODIUM [Suspect]
     Indication: OSTEOPOROSIS
     Dosage: 70 MG, UNK

REACTIONS (32)
  - Femur fracture [Unknown]
  - Humerus fracture [Unknown]
  - Intramedullary rod insertion [Unknown]
  - Renal failure acute [Unknown]
  - Hypoacusis [Unknown]
  - Death [Fatal]
  - Depression [Unknown]
  - Anxiety [Unknown]
  - Pain [Unknown]
  - Type 2 diabetes mellitus [Unknown]
  - Adverse event [Unknown]
  - Diverticulum [Unknown]
  - Anxiety [Unknown]
  - Dyslipidaemia [Unknown]
  - Aortic valve incompetence [Unknown]
  - Pancreatic cyst [Unknown]
  - Spinal column stenosis [Unknown]
  - Presyncope [Unknown]
  - Hyperkalaemia [Unknown]
  - Osteoarthritis [Unknown]
  - Bone disorder [Unknown]
  - Anaemia postoperative [Unknown]
  - Hypovolaemia [Unknown]
  - Hiatus hernia [Unknown]
  - Cardiac disorder [Unknown]
  - Pleural effusion [Unknown]
  - Respiratory distress [Unknown]
  - Aspiration [Unknown]
  - Aspiration pleural cavity [Unknown]
  - Gastrostomy [Unknown]
  - Dry mouth [Unknown]
  - Constipation [Unknown]
